FAERS Safety Report 25418683 (Version 1)
Quarter: 2025Q2

REPORT INFORMATION
  Report Type: Spontaneous
  Country: JP (occurrence: JP)
  Receive Date: 20250610
  Receipt Date: 20250610
  Transmission Date: 20250717
  Serious: Yes (Other)
  Sender: ABBVIE
  Company Number: JP-ABBVIE-6311543

PATIENT
  Age: 90 Year
  Sex: Male

DRUGS (2)
  1. ALPHAGAN P [Suspect]
     Active Substance: BRIMONIDINE TARTRATE
     Indication: Glaucoma
     Route: 047
     Dates: start: 20140623, end: 20180118
  2. TIMOLOL MALEATE\TRAVOPROST [Concomitant]
     Active Substance: TIMOLOL MALEATE\TRAVOPROST
     Indication: Product used for unknown indication
     Route: 047

REACTIONS (2)
  - Corneal opacity [Not Recovered/Not Resolved]
  - Corneal oedema [Unknown]

NARRATIVE: CASE EVENT DATE: 20180118
